FAERS Safety Report 10959929 (Version 1)
Quarter: 2015Q1

REPORT INFORMATION
  Report Type: Spontaneous
  Country: PR (occurrence: None)
  Receive Date: 20150325
  Receipt Date: 20150325
  Transmission Date: 20150721
  Serious: Yes (Other)
  Sender: FDA-Public Use
  Company Number: 001882725A

PATIENT
  Age: 44 Year
  Sex: Female

DRUGS (5)
  1. PROACTIVPLUS SKIN SMOOTHING EXFOLIATOR [Suspect]
     Active Substance: BENZOYL PEROXIDE
     Indication: ACNE
     Dosage: ONCE DAILY DERMAL
     Route: 061
     Dates: start: 20150122, end: 20150123
  2. PROACTIV PLUS PORE TARGETING TREATMENT [Suspect]
     Active Substance: BENZOYL PEROXIDE
     Indication: ACNE
     Dosage: ONCE DAILY DERMAL
     Route: 061
     Dates: start: 20150122, end: 20150123
  3. PROACTIV PLUS MARK FADING [Suspect]
     Active Substance: GLYCOLIC ACID\SALICYLIC ACID
     Indication: ACNE
     Dosage: ONCE DAILY DERMAL
     Route: 061
     Dates: start: 20150122, end: 20150123
  4. PROACTIV PLUS SKIN PURIFYING MASK [Concomitant]
     Active Substance: SULFUR
     Dosage: ONCE DAILY
  5. PROACTIV PLUS COMPLEXION PERFECTING HYDRATOR [Suspect]
     Active Substance: SALICYLIC ACID
     Indication: ACNE
     Dosage: ONCE DAILY DERMAL
     Route: 061
     Dates: start: 20150121, end: 20150123

REACTIONS (3)
  - Eye swelling [None]
  - Rash generalised [None]
  - Erythema [None]

NARRATIVE: CASE EVENT DATE: 20150123
